FAERS Safety Report 5100817-4 (Version None)
Quarter: 2006Q3

REPORT INFORMATION
  Report Type: 
  Country: None (occurrence: None)
  Receive Date: 20060906
  Receipt Date: 20060823
  Transmission Date: 20061208
  Serious: Yes (Other)
  Sender: FDA-Public Use
  Company Number: POMP-10811

PATIENT
  Age: 7 Month
  Sex: Female
  Weight: 7.65 kg

DRUGS (1)
  1. MYOZYME [Suspect]
     Indication: GLYCOGEN STORAGE DISEASE TYPE II
     Dosage: 20 MG/KG Q2WKS IV
     Route: 042
     Dates: start: 20060225

REACTIONS (5)
  - INFUSION RELATED REACTION [None]
  - PALLOR [None]
  - PULSE ABSENT [None]
  - PYREXIA [None]
  - TREMOR [None]
